FAERS Safety Report 4788995-8 (Version None)
Quarter: 2005Q4

REPORT INFORMATION
  Report Type: 
  Country: None (occurrence: None)
  Receive Date: 20051004
  Receipt Date: 20050923
  Transmission Date: 20060501
  Serious: Yes (Other)
  Sender: FDA-Public Use
  Company Number: 2005134014

PATIENT
  Age: 19 Year
  Sex: Female
  Weight: 77.1115 kg

DRUGS (3)
  1. DEPO-PROVERA [Suspect]
     Indication: CONTRACEPTION
     Dosage: (FIRST INJECTION: EVERY 3 MONTHS), INTRAMUSCULAR
     Route: 030
     Dates: start: 20050601, end: 20050601
  2. BEXTRA [Suspect]
     Indication: ARTHRALGIA
  3. VITAMINS (VITAMINS) [Concomitant]

REACTIONS (5)
  - CARDIAC MURMUR [None]
  - EPISTAXIS [None]
  - INFECTIOUS MONONUCLEOSIS [None]
  - NASOPHARYNGITIS [None]
  - VAGINAL HAEMORRHAGE [None]
